FAERS Safety Report 7972982-2 (Version None)
Quarter: 2011Q4

REPORT INFORMATION
  Report Type: 
  Country: None (occurrence: None)
  Receive Date: 20111213
  Receipt Date: 20111207
  Transmission Date: 20120403
  Serious: Yes (Other)
  Sender: FDA-Public Use
  Company Number: US-PFIZER INC-2011219883

PATIENT
  Sex: Male
  Weight: 113 kg

DRUGS (5)
  1. IBUPROFEN [Suspect]
     Indication: DIABETIC NEUROPATHY
     Dosage: UNK
  2. LYRICA [Suspect]
     Indication: DIABETIC NEUROPATHY
     Dosage: 75 MG, 4X/DAY
     Route: 048
  3. ASPIRIN [Concomitant]
     Indication: NEUROPATHY PERIPHERAL
     Dosage: UNK
  4. MORPHINE [Concomitant]
     Indication: NEUROPATHY PERIPHERAL
     Dosage: 30 MG, 3X/DAY
  5. VIAGRA [Concomitant]
     Indication: SEXUAL DYSFUNCTION
     Dosage: UNK

REACTIONS (11)
  - JOINT SWELLING [None]
  - SCHIZOPHRENIA [None]
  - CONSTIPATION [None]
  - RESTLESS LEGS SYNDROME [None]
  - PAIN IN EXTREMITY [None]
  - DRUG EFFECT DECREASED [None]
  - EMOTIONAL DISORDER [None]
  - GAIT DISTURBANCE [None]
  - FACTITIOUS DISORDER [None]
  - PAIN [None]
  - DRUG EFFECT DELAYED [None]
